FAERS Safety Report 4837435-9 (Version None)
Quarter: 2005Q4

REPORT INFORMATION
  Report Type: 
  Country: None (occurrence: None)
  Receive Date: 20051128
  Receipt Date: 20051116
  Transmission Date: 20060501
  Serious: Yes (Other)
  Sender: FDA-Public Use
  Company Number: GB-JNJFOC-20050905833

PATIENT
  Sex: Male
  Weight: 71 kg

DRUGS (2)
  1. CONCERTA [Suspect]
     Dosage: THERAPY WAS STOPPED AFTER SECOND DOSE.
     Route: 048
  2. OXYBUTYNIN [Interacting]
     Dosage: THERAPY WAS ONGOING FOR SEVERAL YEARS.
     Route: 065

REACTIONS (9)
  - AGGRESSION [None]
  - AMNESIA [None]
  - DIZZINESS [None]
  - DRUG INTERACTION [None]
  - HEADACHE [None]
  - PALPITATIONS [None]
  - PSYCHOMOTOR HYPERACTIVITY [None]
  - PYREXIA [None]
  - VOMITING [None]
